FAERS Safety Report 5766664-5 (Version None)
Quarter: 2008Q2

REPORT INFORMATION
  Report Type: 
  Country: None (occurrence: None)
  Receive Date: 20080610
  Receipt Date: 20080610
  Transmission Date: 20081010
  Serious: Yes (Life-Threatening, Hospitalization)
  Sender: FDA-Public Use
  Company Number: None

PATIENT
  Sex: Female
  Weight: 64.4108 kg

DRUGS (1)
  1. YAZ [Suspect]
     Indication: VENTRICULAR EXTRASYSTOLES
     Dosage: 1 TABLET DAILY PO
     Route: 048
     Dates: start: 20070620, end: 20070830

REACTIONS (4)
  - BACK PAIN [None]
  - MUSCLE STRAIN [None]
  - PAIN [None]
  - PULMONARY EMBOLISM [None]
